FAERS Safety Report 19178379 (Version 2)
Quarter: 2021Q2

REPORT INFORMATION
  Report Type: Report from Study
  Country: CA (occurrence: CA)
  Receive Date: 20210426
  Receipt Date: 20210429
  Transmission Date: 20210717
  Serious: Yes (Other)
  Sender: FDA-Public Use
  Company Number: CA-JNJFOC-20210440780

PATIENT
  Age: 15 Year
  Sex: Female
  Weight: 57.6 kg

DRUGS (2)
  1. REMICADE [Suspect]
     Active Substance: INFLIXIMAB
     Indication: CROHN^S DISEASE
     Route: 042
     Dates: start: 20210205
  2. REMICADE [Suspect]
     Active Substance: INFLIXIMAB
     Dosage: ON 23?APR?2021, THE PATIENT HAD RECEIVED 4TH INFLIXIMAB INFUSION AT DOSE OF 300 MG
     Route: 042
     Dates: start: 20210420

REACTIONS (3)
  - Product use issue [Unknown]
  - Crohn^s disease [Not Recovered/Not Resolved]
  - Off label use [Unknown]

NARRATIVE: CASE EVENT DATE: 20210420
